FAERS Safety Report 6751672-8 (Version None)
Quarter: 2010Q2

REPORT INFORMATION
  Report Type: 
  Country: None (occurrence: None)
  Receive Date: 20100602
  Receipt Date: 20100528
  Transmission Date: 20101027
  Serious: Yes (Other)
  Sender: FDA-Public Use
  Company Number: A0862092A

PATIENT
  Age: 52 Year
  Sex: Female

DRUGS (1)
  1. AVANDIA [Suspect]
     Indication: DIABETES MELLITUS
     Dosage: 8MG PER DAY

REACTIONS (4)
  - CARDIAC FAILURE CONGESTIVE [None]
  - FLUID RETENTION [None]
  - MYOCARDIAL INFARCTION [None]
  - SWELLING [None]
